FAERS Safety Report 24416138 (Version 1)
Quarter: 2024Q4

REPORT INFORMATION
  Report Type: Spontaneous
  Country: US (occurrence: None)
  Receive Date: 20241008
  Receipt Date: 20241008
  Transmission Date: 20250115
  Serious: Yes (Hospitalization)
  Sender: Public
  Company Number: None

PATIENT
  Age: 63 Year
  Sex: Male

DRUGS (3)
  1. FUROSEMIDE [Suspect]
     Active Substance: FUROSEMIDE
     Indication: Hypertension
     Dosage: FREQUENCY : DAILY;?
     Route: 048
  2. FINASTERIDE [Suspect]
     Active Substance: FINASTERIDE
  3. TAMSULOSIN [Suspect]
     Active Substance: TAMSULOSIN

REACTIONS (1)
  - Orthostatic hypotension [None]

NARRATIVE: CASE EVENT DATE: 20240510
